FAERS Safety Report 8714060 (Version 2)
Quarter: 2018Q2

REPORT INFORMATION
  Report Type: Report from Study
  Country: ZA (occurrence: ZA)
  Receive Date: 20120808
  Receipt Date: 20180406
  Transmission Date: 20180711
  Serious: Yes (Hospitalization, Other)
  Sender: FDA-Public Use
  Company Number: ZA-ROCHE-1098409

PATIENT
  Sex: Male

DRUGS (5)
  1. EPOETIN BETA [Suspect]
     Active Substance: ERYTHROPOIETIN
     Route: 058
  2. EPREX [Concomitant]
     Active Substance: ERYTHROPOIETIN
  3. EPOETIN BETA [Suspect]
     Active Substance: ERYTHROPOIETIN
     Route: 058
  4. MIRCERA [Suspect]
     Active Substance: METHOXY POLYETHYLENE GLYCOL-EPOETIN BETA
     Indication: NEPHROGENIC ANAEMIA
     Route: 058
  5. EPOETIN BETA [Suspect]
     Active Substance: ERYTHROPOIETIN
     Indication: NEPHROGENIC ANAEMIA
     Route: 058

REACTIONS (7)
  - Myocardial infarction [Unknown]
  - Fluid retention [Unknown]
  - Device related infection [Unknown]
  - Pulmonary oedema [Unknown]
  - Malaise [Unknown]
  - Ill-defined disorder [Unknown]
  - Haemorrhage [Unknown]
